FAERS Safety Report 10095587 (Version 4)
Quarter: 2014Q3

REPORT INFORMATION
  Report Type: Report from Study
  Country: JP (occurrence: JP)
  Receive Date: 20140422
  Receipt Date: 20140703
  Transmission Date: 20150326
  Serious: Yes (Hospitalization)
  Sender: FDA-Public Use
  Company Number: JP-ASTRAZENECA-2014SE27225

PATIENT
  Age: 23946 Day
  Sex: Male

DRUGS (16)
  1. SELBEX [Suspect]
     Active Substance: TEPRENONE
     Indication: ABDOMINAL PAIN UPPER
     Route: 048
     Dates: start: 20140116
  2. HERBESSER [Suspect]
     Active Substance: DILTIAZEM HYDROCHLORIDE
     Indication: PRINZMETAL ANGINA
     Route: 048
  3. ZYLORIC [Suspect]
     Active Substance: ALLOPURINOL
     Indication: HYPERURICAEMIA
     Route: 048
  4. CARBOCISTEINE [Suspect]
     Active Substance: CARBOCYSTEINE
     Indication: NASOPHARYNGITIS
     Route: 048
     Dates: start: 20140314
  5. ANHYDROUS CAFFEINE [Suspect]
     Active Substance: CAFFEINE
     Indication: HEADACHE
     Route: 048
     Dates: start: 20120323
  6. LANSOPRAZOLE. [Suspect]
     Active Substance: LANSOPRAZOLE
     Indication: GASTRITIS PROPHYLAXIS
     Route: 048
  7. ASA [Concomitant]
     Active Substance: ASPIRIN
     Route: 048
     Dates: end: 20140406
  8. ASA [Concomitant]
     Active Substance: ASPIRIN
     Route: 048
     Dates: start: 20140415
  9. CRESTOR [Suspect]
     Active Substance: ROSUVASTATIN CALCIUM
     Indication: DYSLIPIDAEMIA
     Route: 048
  10. HARNAL [Suspect]
     Active Substance: TAMSULOSIN HYDROCHLORIDE
     Indication: BENIGN PROSTATIC HYPERPLASIA
     Route: 048
     Dates: start: 20140225
  11. XYLOCAINE [Concomitant]
     Active Substance: LIDOCAINE HYDROCHLORIDE
     Indication: ENDOSCOPY UPPER GASTROINTESTINAL TRACT
     Route: 048
     Dates: start: 20140319, end: 20140319
  12. AZD6140 [Suspect]
     Active Substance: TICAGRELOR
     Indication: CORONARY ARTERY DISEASE
     Route: 048
     Dates: start: 20120118, end: 20140406
  13. ACETAMINOPHEN. [Suspect]
     Active Substance: ACETAMINOPHEN
     Indication: HEADACHE
     Route: 048
     Dates: start: 20120323
  14. RENIVACE [Suspect]
     Active Substance: ENALAPRIL
     Indication: CARDIOMYOPATHY
     Route: 048
  15. ETHENZAMIDE [Suspect]
     Active Substance: ETHENZAMIDE
     Indication: HEADACHE
     Route: 048
     Dates: start: 20120323
  16. HUSCODE [Suspect]
     Active Substance: CHLORPHENIRAMINE MALEAT\DIHYDROCODEINE PHOSPHATE\METHYLEPHEDRINE HYDROCHLORIDE, DL-
     Indication: NASOPHARYNGITIS
     Route: 048
     Dates: start: 20140314

REACTIONS (1)
  - Temporal arteritis [Not Recovered/Not Resolved]

NARRATIVE: CASE EVENT DATE: 20140326
